FAERS Safety Report 8407980-8 (Version None)
Quarter: 2012Q2

REPORT INFORMATION
  Report Type: 
  Country: None (occurrence: None)
  Receive Date: 20120529
  Receipt Date: 20060518
  Transmission Date: 20120825
  Serious: Yes (Other)
  Sender: FDA-Public Use
  Company Number: JP-2011-12251

PATIENT
  Age: 71 Year
  Sex: Male

DRUGS (7)
  1. PENFILL 30R (INSULIN HUMAN, INSULIN HUMAN INJECTION, ISOPHANE) [Concomitant]
  2. DEPAS (ETIZOLAM) [Concomitant]
  3. MAGMITT (MAGNESIUM OXIDE) [Concomitant]
  4. MERISLON (BETAHISTINE MESILATE) [Concomitant]
  5. PLETAL [Suspect]
     Indication: LACUNAR INFARCTION
     Dosage: 50 MG MILLIGRAM(S), BID, ORAL
     Route: 048
     Dates: start: 20040414
  6. MUCODYNE (CARBOCISTEINE) [Concomitant]
  7. BASEN (VOGLIBOSE) [Concomitant]

REACTIONS (1)
  - DEPRESSION [None]
